FAERS Safety Report 4868347-2 (Version None)
Quarter: 2005Q4

REPORT INFORMATION
  Report Type: 
  Country: None (occurrence: None)
  Receive Date: 20051223
  Receipt Date: 20051212
  Transmission Date: 20060501
  Serious: Yes (Death, Hospitalization)
  Sender: FDA-Public Use
  Company Number: 220305

PATIENT
  Age: 77 Year
  Sex: Male

DRUGS (6)
  1. AVASTIN [Suspect]
     Indication: NON-SMALL CELL LUNG CANCER
  2. TARCEVA [Suspect]
     Indication: NON-SMALL CELL LUNG CANCER
  3. LOTENSIN [Concomitant]
  4. PREDNISONE [Concomitant]
  5. WINRHO SD (RHO(D) IMMUNE GLOBULIN) [Concomitant]
  6. ATIVAN [Concomitant]

REACTIONS (8)
  - CEREBRAL HAEMORRHAGE [None]
  - IDIOPATHIC THROMBOCYTOPENIC PURPURA [None]
  - METASTASES TO CENTRAL NERVOUS SYSTEM [None]
  - MULTI-ORGAN FAILURE [None]
  - MYOCARDIAL INFARCTION [None]
  - PLEURAL EFFUSION [None]
  - RENAL FAILURE [None]
  - RESPIRATORY FAILURE [None]
